FAERS Safety Report 5623500-5 (Version None)
Quarter: 2008Q1

REPORT INFORMATION
  Report Type: 
  Country: None (occurrence: None)
  Receive Date: 20080212
  Receipt Date: 20080131
  Transmission Date: 20080703
  Serious: Yes (Death)
  Sender: FDA-Public Use
  Company Number: TR-ELI_LILLY_AND_COMPANY-TR200802000084

PATIENT
  Sex: Male

DRUGS (2)
  1. HUMULIN N [Suspect]
     Dosage: 18 U, EACH MORNING
     Route: 058
     Dates: start: 20071220
  2. HUMULIN N [Suspect]
     Dosage: 8 U, EACH EVENING
     Route: 058
     Dates: start: 20071220

REACTIONS (2)
  - CARDIAC FAILURE [None]
  - RENAL FAILURE [None]
